FAERS Safety Report 11533788 (Version 1)
Quarter: 2015Q3

REPORT INFORMATION
  Report Type: Report from Study
  Country: IN (occurrence: IN)
  Receive Date: 20150922
  Receipt Date: 20150922
  Transmission Date: 20151125
  Serious: Yes (Other)
  Sender: FDA-Public Use
  Company Number: IN-ROCHE-1636743

PATIENT
  Age: 49 Year
  Sex: Female

DRUGS (2)
  1. COPEGUS [Suspect]
     Active Substance: RIBAVIRIN
     Indication: HEPATITIS C
     Dosage: 4 TABLETS
     Route: 048
     Dates: start: 20150630, end: 20150818
  2. EXXURA [Suspect]
     Active Substance: PEGINTERFERON ALFA-2A
     Indication: HEPATITIS C
     Route: 058
     Dates: start: 20150630, end: 20150818

REACTIONS (1)
  - White blood cell count decreased [Recovering/Resolving]
